FAERS Safety Report 11013759 (Version 2)
Quarter: 2015Q2

REPORT INFORMATION
  Report Type: Spontaneous
  Country: US (occurrence: US)
  Receive Date: 20150412
  Receipt Date: 20150526
  Transmission Date: 20150821
  Serious: No
  Sender: FDA-Public Use
  Company Number: US-JNJFOC-20130504849

PATIENT
  Sex: Female

DRUGS (1)
  1. PANCREAZE [Suspect]
     Active Substance: PANCRELIPASE
     Indication: PRODUCT USED FOR UNKNOWN INDICATION
     Dosage: 10,500 USP UNITS,TWICE A DAY WITH EACH MEAL
     Route: 048
     Dates: start: 201008

REACTIONS (1)
  - Product packaging issue [Not Recovered/Not Resolved]
